FAERS Safety Report 4770711-7 (Version None)
Quarter: 2005Q3

REPORT INFORMATION
  Report Type: 
  Country: None (occurrence: None)
  Receive Date: 20050915
  Receipt Date: 20050908
  Transmission Date: 20060218
  Serious: Yes (Life-Threatening)
  Sender: FDA-Public Use
  Company Number: 2005AP04876

PATIENT
  Age: 52 Year
  Sex: Male

DRUGS (4)
  1. MERONEM [Suspect]
     Indication: SEPSIS
     Route: 042
     Dates: start: 20050310
  2. MERONEM [Suspect]
     Indication: PNEUMONIA
     Route: 042
     Dates: start: 20050310
  3. CLOXACILLIN [Concomitant]
  4. OMEPRAZOLE [Concomitant]

REACTIONS (1)
  - HYPERNATRAEMIA [None]
